FAERS Safety Report 6526944-2 (Version None)
Quarter: 2010Q1

REPORT INFORMATION
  Report Type: 
  Country: None (occurrence: None)
  Receive Date: 20100104
  Receipt Date: 20100104
  Transmission Date: 20100710
  Serious: Yes (Death)
  Sender: FDA-Public Use
  Company Number: None

PATIENT
  Sex: Male
  Weight: 90 kg

DRUGS (1)
  1. ZANAMIVIR 600 MG IV Q12 H GSK [Suspect]
     Indication: H1N1 INFLUENZA
     Dosage: ZANAMIVIR 600 MG Q12H INTRAVENOUS
     Route: 042
     Dates: start: 20091130, end: 20091207

REACTIONS (1)
  - ACUTE RESPIRATORY DISTRESS SYNDROME [None]
